FAERS Safety Report 5679959-0 (Version None)
Quarter: 2008Q1

REPORT INFORMATION
  Report Type: 
  Country: None (occurrence: None)
  Receive Date: 20080324
  Receipt Date: 20080313
  Transmission Date: 20080703
  Serious: Yes (Other)
  Sender: FDA-Public Use
  Company Number: GXKR2008IE02662

PATIENT
  Age: 25 Year
  Sex: Female

DRUGS (1)
  1. DICLAC (NGX)(DICLOFENAC) GASTRO-RESISTANT TABLET, 50MG [Suspect]
     Indication: SACROILIITIS
     Dosage: 50 MG, Q8H, ORAL
     Route: 048

REACTIONS (2)
  - DEPRESSION [None]
  - THINKING ABNORMAL [None]
